FAERS Safety Report 7813301-1 (Version None)
Quarter: 2011Q4

REPORT INFORMATION
  Report Type: 
  Country: None (occurrence: None)
  Receive Date: 20111013
  Receipt Date: 20111007
  Transmission Date: 20120403
  Serious: Yes (Other)
  Sender: FDA-Public Use
  Company Number: CL-ABBOTT-11P-034-0862524-00

PATIENT
  Age: 28 Year
  Sex: Male

DRUGS (6)
  1. TACROLIMUS [Concomitant]
     Dosage: TROUGH LEVEL, 3-5 NG/DL
  2. CYCLOSPORINE [Suspect]
     Indication: GRAFT VERSUS HOST DISEASE
  3. TACROLIMUS [Concomitant]
     Indication: IMMUNOSUPPRESSION
     Dosage: TROUGH LEVEL, 8-12 NG/DL
  4. MYCOPHENOLATE MOFETIL [Concomitant]
     Indication: IMMUNOSUPPRESSION
  5. BASILIXIMAB [Concomitant]
     Indication: NEPHRECTOMY
  6. STEROID TAPER [Concomitant]
     Indication: IMMUNOSUPPRESSION

REACTIONS (2)
  - RENAL FAILURE CHRONIC [None]
  - THROMBOTIC THROMBOCYTOPENIC PURPURA [None]
